FAERS Safety Report 11280004 (Version 2)
Quarter: 2015Q4

REPORT INFORMATION
  Report Type: Spontaneous
  Country: US (occurrence: US)
  Receive Date: 20150717
  Receipt Date: 20151016
  Transmission Date: 20160304
  Serious: No
  Sender: FDA-Public Use
  Company Number: US-GALDERMA-US15004676

PATIENT
  Age: 44 Year
  Sex: Female
  Weight: 86.26 kg

DRUGS (5)
  1. FAMVIR [Concomitant]
     Active Substance: FAMCICLOVIR
     Dosage: 500 MG
     Route: 048
     Dates: start: 20130321
  2. SOOLANTRA [Suspect]
     Active Substance: IVERMECTIN
     Indication: ROSACEA
     Dosage: 1%
     Route: 061
     Dates: start: 20150227, end: 20150605
  3. LEXAPRO [Concomitant]
     Active Substance: ESCITALOPRAM OXALATE
     Route: 048
  4. DEXILANT [Concomitant]
     Active Substance: DEXLANSOPRAZOLE
     Route: 048
  5. NORITATE 1% [Concomitant]
     Dosage: 60 GRAM
     Route: 061
     Dates: start: 20120224

REACTIONS (1)
  - Seborrhoea [Not Recovered/Not Resolved]

NARRATIVE: CASE EVENT DATE: 20150227
